FAERS Safety Report 19736252 (Version 1)
Quarter: 2021Q3

REPORT INFORMATION
  Report Type: Spontaneous
  Country: RU (occurrence: RU)
  Receive Date: 20210823
  Receipt Date: 20210823
  Transmission Date: 20211014
  Serious: Yes (Hospitalization)
  Sender: FDA-Public Use
  Company Number: RU-ROCHE-2893122

PATIENT
  Age: 76 Year
  Sex: Female

DRUGS (1)
  1. TECENTRIQ [Suspect]
     Active Substance: ATEZOLIZUMAB
     Indication: TRANSITIONAL CELL CARCINOMA
     Dosage: DATE OF LAST DOSE (1200 MG) OF ATEZOLIZUMAB: 27/JUL/2021,
     Route: 041
     Dates: start: 20190214

REACTIONS (5)
  - Anaemia [Unknown]
  - Asthenia [Unknown]
  - Blood creatinine increased [Unknown]
  - Diarrhoea [Unknown]
  - Gastrointestinal toxicity [Unknown]

NARRATIVE: CASE EVENT DATE: 201903
